FAERS Safety Report 6479829-4 (Version None)
Quarter: 2009Q4

REPORT INFORMATION
  Report Type: 
  Country: None (occurrence: None)
  Receive Date: 20091208
  Receipt Date: 20091207
  Transmission Date: 20100525
  Serious: Yes (Hospitalization)
  Sender: FDA-Public Use
  Company Number: FR-SANOFI-AVENTIS-2009SA006866

PATIENT
  Age: 11 Month
  Sex: Female
  Weight: 9 kg

DRUGS (15)
  1. RIFADIN [Suspect]
     Route: 048
     Dates: start: 20090727, end: 20091029
  2. RIMIFON [Concomitant]
     Dates: start: 20090727, end: 20090729
  3. FORTUM /UNK/ [Concomitant]
     Indication: CHOLANGITIS
     Dates: start: 20091018, end: 20091029
  4. AMIKLIN [Concomitant]
     Indication: BILIARY TRACT INFECTION
     Dates: start: 20091018
  5. URSO FALK [Concomitant]
     Indication: DRUG USE FOR UNKNOWN INDICATION
  6. ALDACTONE [Concomitant]
     Indication: DRUG USE FOR UNKNOWN INDICATION
  7. FUMAFER [Concomitant]
     Indication: DRUG USE FOR UNKNOWN INDICATION
  8. VEDROP [Concomitant]
     Indication: DRUG USE FOR UNKNOWN INDICATION
  9. MOTILIUM [Concomitant]
     Indication: DRUG USE FOR UNKNOWN INDICATION
  10. TIORFAN [Concomitant]
     Indication: DRUG USE FOR UNKNOWN INDICATION
  11. SPECIAFOLDINE [Concomitant]
     Indication: DRUG USE FOR UNKNOWN INDICATION
  12. VITAMINE K1 DELAGRANGE [Concomitant]
     Indication: DRUG USE FOR UNKNOWN INDICATION
  13. DOHYFRAL VITAMINE AD3 [Concomitant]
     Indication: DRUG USE FOR UNKNOWN INDICATION
  14. CACIT VITAMINE D3 [Concomitant]
     Indication: DRUG USE FOR UNKNOWN INDICATION
  15. SODIUM BICARBONATE IN PLASTIC CONTAINER [Concomitant]
     Indication: DRUG USE FOR UNKNOWN INDICATION

REACTIONS (3)
  - ANGIOPATHY [None]
  - HAEMOLYTIC URAEMIC SYNDROME [None]
  - THROMBOCYTOPENIA [None]
